FAERS Safety Report 15976533 (Version 1)
Quarter: 2019Q1

REPORT INFORMATION
  Report Type: Report from Study
  Country: US (occurrence: US)
  Receive Date: 20190218
  Receipt Date: 20190218
  Transmission Date: 20190418
  Serious: Yes (Hospitalization, Other)
  Sender: FDA-Public Use
  Company Number: US-SA-2019SA042330

PATIENT
  Age: 65 Year
  Sex: Male

DRUGS (3)
  1. INSULIN GLARGINE [Suspect]
     Active Substance: INSULIN GLARGINE
     Dosage: 45 IU, QD
     Route: 058
  2. HUMALOG [Concomitant]
     Active Substance: INSULIN LISPRO
     Dosage: UNK UNK, BID/ 4 TO 6 UNITS TWICE DAILY
     Route: 058
  3. INSULIN GLARGINE [Suspect]
     Active Substance: INSULIN GLARGINE
     Indication: TYPE 1 DIABETES MELLITUS
     Dosage: 35 IU, QD
     Route: 058

REACTIONS (9)
  - Dyspnoea [Recovered/Resolved]
  - Blood glucose increased [Recovered/Resolved]
  - Back pain [Recovered/Resolved]
  - Spinal fusion surgery [Unknown]
  - Pulmonary thrombosis [Not Recovered/Not Resolved]
  - Inability to afford medication [Unknown]
  - Spinal disorder [Recovered/Resolved]
  - Asthenia [Recovered/Resolved]
  - Osteomyelitis [Not Recovered/Not Resolved]

NARRATIVE: CASE EVENT DATE: 200803
